FAERS Safety Report 4676578-X (Version None)
Quarter: 2005Q2

REPORT INFORMATION
  Report Type: 
  Country: None (occurrence: None)
  Receive Date: 20050527
  Receipt Date: 20050127
  Transmission Date: 20051028
  Serious: Yes (Hospitalization)
  Sender: FDA-Public Use
  Company Number: DE-ROCHE-393812

PATIENT
  Age: 63 Year
  Sex: Female
  Weight: 114 kg

DRUGS (3)
  1. XENICAL [Suspect]
     Route: 048
  2. CO-DIOVAN [Concomitant]
     Dosage: (TDD: 160/125MG)
  3. PRAVASTATIN [Concomitant]
     Indication: HYPERCHOLESTEROLAEMIA

REACTIONS (2)
  - CEREBELLAR INFARCTION [None]
  - HYPERTENSION [None]
